FAERS Safety Report 19442290 (Version 1)
Quarter: 2021Q2

REPORT INFORMATION
  Report Type: Spontaneous
  Country: US (occurrence: US)
  Receive Date: 20210617
  Receipt Date: 20210617
  Transmission Date: 20210717
  Serious: Yes (Hospitalization)
  Sender: FDA-Public Use
  Company Number: None

PATIENT
  Age: 53 Year
  Sex: Female
  Weight: 95.25 kg

DRUGS (17)
  1. JENTADUETO [Concomitant]
     Active Substance: LINAGLIPTIN\METFORMIN HYDROCHLORIDE
  2. LANTUS SOLOSTAR [Concomitant]
     Active Substance: INSULIN GLARGINE
  3. MEGESTROL ACETATE. [Concomitant]
     Active Substance: MEGESTROL ACETATE
  4. CAPECITABINE 500 MG [Suspect]
     Active Substance: CAPECITABINE
     Indication: BREAST CANCER
     Dosage: 4X 500 MG TABLET EVERY 12 HR  ORAL
     Route: 048
     Dates: start: 20210310
  5. ASPIRIN 81 MG [Concomitant]
     Active Substance: ASPIRIN
  6. FUROSEMIDE. [Concomitant]
     Active Substance: FUROSEMIDE
  7. MAPAP [Concomitant]
     Active Substance: ACETAMINOPHEN
  8. TORSEMIDE. [Concomitant]
     Active Substance: TORSEMIDE
  9. ATORVASTATIN [Concomitant]
     Active Substance: ATORVASTATIN
  10. LOSARTAN. [Concomitant]
     Active Substance: LOSARTAN
  11. SERTRALINE [Concomitant]
     Active Substance: SERTRALINE HYDROCHLORIDE
  12. LEVOTHYROXINE. [Concomitant]
     Active Substance: LEVOTHYROXINE
  13. NOVOLOG [Concomitant]
     Active Substance: INSULIN ASPART
  14. CYCLOBENZAPRINE. [Concomitant]
     Active Substance: CYCLOBENZAPRINE
  15. ALPRAZOLAM. [Concomitant]
     Active Substance: ALPRAZOLAM
  16. ERGOCALCIFEROL. [Concomitant]
     Active Substance: ERGOCALCIFEROL
  17. METOPROLOL. [Concomitant]
     Active Substance: METOPROLOL

REACTIONS (1)
  - Pulmonary oedema [None]
